FAERS Safety Report 6922791-8 (Version None)
Quarter: 2010Q3

REPORT INFORMATION
  Report Type: 
  Country: None (occurrence: None)
  Receive Date: 20100813
  Receipt Date: 20100713
  Transmission Date: 20110219
  Serious: No
  Sender: FDA-Public Use
  Company Number: US-BAYER-201017973BCC

PATIENT
  Age: 81 Year
  Sex: Male
  Weight: 64 kg

DRUGS (8)
  1. ALEVE (CAPLET) [Suspect]
     Indication: MUSCULOSKELETAL PAIN
     Dosage: 220 MG OR 440 MG DAILY
     Route: 048
     Dates: start: 20100101
  2. MULTI-VITAMIN [Concomitant]
     Route: 065
  3. ASCORBIC ACID [Concomitant]
     Route: 065
  4. VITAMIN D [Concomitant]
     Route: 065
  5. VITAMIN B6 [Concomitant]
     Route: 065
  6. VITAMIN B-12 [Concomitant]
     Route: 065
  7. FOLIC [Concomitant]
     Route: 065
  8. CALCIUM [Concomitant]
     Route: 065

REACTIONS (6)
  - EYE SWELLING [None]
  - GENERALISED ERYTHEMA [None]
  - PRURITUS [None]
  - RASH GENERALISED [None]
  - SKIN EXFOLIATION [None]
  - SWELLING FACE [None]
